FAERS Safety Report 5194844-9 (Version None)
Quarter: 2006Q4

REPORT INFORMATION
  Report Type: 
  Country: None (occurrence: None)
  Receive Date: 20061229
  Receipt Date: 20060407
  Transmission Date: 20070319
  Serious: Yes (Hospitalization)
  Sender: FDA-Public Use
  Company Number: 2006UW06188

PATIENT
  Age: 28383 Day
  Sex: Male
  Weight: 62.1 kg

DRUGS (9)
  1. IRESSA [Suspect]
     Indication: METASTATIC RENAL CELL CARCINOMA
     Route: 048
     Dates: start: 20060208, end: 20060302
  2. IRESSA [Suspect]
     Route: 048
     Dates: start: 20060307, end: 20060319
  3. SU-011,248 (SUNITINIB MALATE) [Suspect]
     Indication: METASTATIC RENAL CELL CARCINOMA
     Route: 048
     Dates: start: 20060208, end: 20060302
  4. SU-011,248 (SUNITINIB MALATE) [Suspect]
     Route: 048
     Dates: start: 20060321
  5. ZIAC [Concomitant]
     Route: 048
     Dates: start: 20050726
  6. NEXIUM [Concomitant]
     Route: 048
     Dates: start: 20050628
  7. COZAAR [Concomitant]
     Route: 048
     Dates: start: 20060307
  8. TAMSULOSIN HCL [Concomitant]
     Route: 048
     Dates: start: 20051024
  9. IMODIUM A-D [Concomitant]
     Route: 048
     Dates: start: 20060307, end: 20060316

REACTIONS (2)
  - DIARRHOEA [None]
  - HYPOMAGNESAEMIA [None]
